FAERS Safety Report 8105780-X (Version None)
Quarter: 2012Q1

REPORT INFORMATION
  Report Type: 
  Country: None (occurrence: None)
  Receive Date: 20120201
  Receipt Date: 20120123
  Transmission Date: 20120608
  Serious: Yes (Hospitalization, Other)
  Sender: FDA-Public Use
  Company Number: US-ASTRAZENECA-2012SE01559

PATIENT
  Age: 73 Year
  Sex: Female

DRUGS (3)
  1. SYMBICORT [Suspect]
     Route: 055
  2. PULMICORT FLEXHALER [Suspect]
     Route: 055
  3. PULMICORT FLEXHALER [Suspect]
     Route: 055

REACTIONS (10)
  - DRUG DOSE OMISSION [None]
  - EMPHYSEMA [None]
  - SOMNOLENCE [None]
  - DYSPNOEA [None]
  - ADVERSE EVENT [None]
  - CHRONIC OBSTRUCTIVE PULMONARY DISEASE [None]
  - DYSKINESIA [None]
  - OXYGEN SATURATION DECREASED [None]
  - TREMOR [None]
  - CHEST PAIN [None]
